FAERS Safety Report 26158477 (Version 1)
Quarter: 2025Q4

REPORT INFORMATION
  Report Type: Spontaneous
  Country: US (occurrence: US)
  Receive Date: 20251215
  Receipt Date: 20251215
  Transmission Date: 20260118
  Serious: Yes (Other)
  Sender: BLUEPRINT MEDICINES
  Company Number: US-Blueprint Medicines Corporation-2025-AER-02672

PATIENT
  Age: 47 Year
  Sex: Male

DRUGS (1)
  1. AYVAKIT [Suspect]
     Active Substance: AVAPRITINIB
     Indication: Haematopoietic neoplasm
     Route: 048
     Dates: start: 20240307

REACTIONS (7)
  - Rotator cuff syndrome [Unknown]
  - Sunburn [Unknown]
  - Urticaria [Unknown]
  - Blister [Unknown]
  - Lip swelling [Unknown]
  - Hair colour changes [Unknown]
  - Asthenia [Recovered/Resolved]
